FAERS Safety Report 8790914 (Version 2)
Quarter: 2012Q4

REPORT INFORMATION
  Report Type: Spontaneous
  Country: US (occurrence: None)
  Receive Date: 20120906
  Receipt Date: 20120911
  Transmission Date: 20130627
  Serious: Yes (Hospitalization)
  Sender: FDA-Public Use
  Company Number: UTC-021870

PATIENT
  Age: 51 Year
  Sex: Female
  Weight: 86.82 kg

DRUGS (5)
  1. TYVASO (6 MICROGRAM, AEROSOL FOR INHALATION) (TREPROSTINIL SODIUM) [Suspect]
     Indication: PRIMARY PULMONARY HYPERTENSION
     Dosage: 18-54 MCG (4 IN 1 D), Inhalation
     Route: 055
     Dates: start: 20120712, end: 20120820
  2. TYVASO (6 MICROGRAM, AEROSOL FOR INHALATION) (TREPROSTINIL SODIUM) [Suspect]
     Indication: PRIMARY PULMONARY HYPERTENSION
  3. REVATIO [Concomitant]
  4. TRACLEER (BOSENTAN) [Concomitant]
  5. COUMADIN (WARFARIN SODIUM) [Concomitant]

REACTIONS (6)
  - Cough [None]
  - Headache [None]
  - Migraine [None]
  - Nausea [None]
  - Photophobia [None]
  - Hyperacusis [None]
